FAERS Safety Report 5158232-3 (Version None)
Quarter: 2006Q4

REPORT INFORMATION
  Report Type: 
  Country: None (occurrence: None)
  Receive Date: 20061121
  Receipt Date: 20061121
  Transmission Date: 20070319
  Serious: Yes (Hospitalization)
  Sender: FDA-Public Use
  Company Number: None

PATIENT
  Age: 51 Year
  Sex: Male
  Weight: 89.3586 kg

DRUGS (1)
  1. CLOPIDOGREL [Suspect]
     Indication: STENT PLACEMENT
     Dosage: 75 MG DAILY PO
     Route: 048
     Dates: start: 20061001, end: 20061109

REACTIONS (2)
  - PHARMACEUTICAL PRODUCT COMPLAINT [None]
  - THROMBOSIS IN DEVICE [None]
